FAERS Safety Report 12185326 (Version 2)
Quarter: 2016Q3

REPORT INFORMATION
  Report Type: Report from Study
  Country: US (occurrence: US)
  Receive Date: 20160316
  Receipt Date: 20160915
  Transmission Date: 20161109
  Serious: Yes (Hospitalization, Other)
  Sender: FDA-Public Use
  Company Number: US-ACTELION-A-US2016-130314

PATIENT
  Age: 66 Year
  Sex: Female

DRUGS (3)
  1. TREPROSTINIL DIOLAMIN [Concomitant]
     Active Substance: TREPROSTINIL DIOLAMINE
  2. TRACLEER [Suspect]
     Active Substance: BOSENTAN
     Indication: PULMONARY ARTERIAL HYPERTENSION
     Dosage: 125 MG, BID
     Route: 048
     Dates: start: 20141120
  3. WARFARIN [Concomitant]
     Active Substance: WARFARIN

REACTIONS (8)
  - Dialysis [Unknown]
  - Lung disorder [Unknown]
  - Bronchitis [Unknown]
  - Diarrhoea [Unknown]
  - Headache [Unknown]
  - Pneumonia [Unknown]
  - Cardiac disorder [Unknown]
  - Dyspnoea exertional [Unknown]
